FAERS Safety Report 4699827-0 (Version None)
Quarter: 2005Q2

REPORT INFORMATION
  Report Type: 
  Country: None (occurrence: None)
  Receive Date: 20050622
  Receipt Date: 20050614
  Transmission Date: 20051028
  Serious: Yes (Hospitalization)
  Sender: FDA-Public Use
  Company Number: HQWYE470015JUN05

PATIENT
  Sex: Female
  Weight: 3.46 kg

DRUGS (2)
  1. EFFEXOR XR [Suspect]
     Dosage: SEE IMAGE
     Dates: end: 20050401
  2. EFFEXOR XR [Suspect]
     Dosage: SEE IMAGE
     Dates: start: 20050401

REACTIONS (9)
  - ASTHENIA [None]
  - DRUG EXPOSURE DURING PREGNANCY [None]
  - FEEDING PROBLEM IN NEWBORN [None]
  - FLOPPY INFANT [None]
  - GASTROOESOPHAGEAL REFLUX DISEASE [None]
  - HYPOTONIA NEONATAL [None]
  - RESPIRATORY DISORDER NEONATAL [None]
  - VOMITING NEONATAL [None]
  - WEIGHT DECREASE NEONATAL [None]
